FAERS Safety Report 17791323 (Version 1)
Quarter: 2020Q2

REPORT INFORMATION
  Report Type: Spontaneous
  Country: US (occurrence: US)
  Receive Date: 20200515
  Receipt Date: 20200515
  Transmission Date: 20200714
  Serious: Yes (Hospitalization)
  Sender: FDA-Public Use
  Company Number: None

PATIENT
  Sex: Female

DRUGS (5)
  1. CAPECITABINE. [Suspect]
     Active Substance: CAPECITABINE
     Indication: PRODUCT USED FOR UNKNOWN INDICATION
     Dosage: ?          OTHER FREQUENCY:IN THE AM;?
     Route: 048
     Dates: start: 20200130
  2. CAPECITABINE. [Suspect]
     Active Substance: CAPECITABINE
     Indication: PRODUCT USED FOR UNKNOWN INDICATION
     Dosage: ?          OTHER FREQUENCY:IN THE PM;?
     Route: 048
     Dates: start: 20200130
  3. METOPROLOL. [Concomitant]
     Active Substance: METOPROLOL
  4. CEPHALEXIN. [Concomitant]
     Active Substance: CEPHALEXIN
  5. MUPIROCIN. [Concomitant]
     Active Substance: MUPIROCIN

REACTIONS (2)
  - Fall [None]
  - Therapy interrupted [None]
